FAERS Safety Report 7707292-1 (Version None)
Quarter: 2011Q3

REPORT INFORMATION
  Report Type: 
  Country: None (occurrence: None)
  Receive Date: 20110824
  Receipt Date: 20110819
  Transmission Date: 20111222
  Serious: Yes (Life-Threatening, Hospitalization, Other)
  Sender: FDA-Public Use
  Company Number: PHEH2009US16618

PATIENT
  Sex: Female
  Weight: 91.74 kg

DRUGS (2)
  1. EXJADE [Suspect]
     Indication: SICKLE CELL ANAEMIA
     Dosage: 2000 MG, DAILY
     Route: 048
     Dates: start: 20070201
  2. EXJADE [Suspect]
     Indication: IRON OVERLOAD

REACTIONS (4)
  - INFECTION [None]
  - SICKLE CELL ANAEMIA WITH CRISIS [None]
  - ARTHRALGIA [None]
  - STAPHYLOCOCCUS TEST POSITIVE [None]
